FAERS Safety Report 13657341 (Version 2)
Quarter: 2017Q2

REPORT INFORMATION
  Report Type: Spontaneous
  Country: US (occurrence: US)
  Receive Date: 20170615
  Receipt Date: 20170626
  Transmission Date: 20170830
  Serious: Yes (Other)
  Sender: FDA-Public Use
  Company Number: US-PFIZER INC-2017254710

PATIENT
  Age: 29 Year
  Sex: Female
  Weight: 72.57 kg

DRUGS (8)
  1. ZOLOFT [Suspect]
     Active Substance: SERTRALINE HYDROCHLORIDE
     Dosage: 6.25 MG, UNK (A QUARTER OF THE TABLET)
     Route: 048
  2. ZOLOFT [Suspect]
     Active Substance: SERTRALINE HYDROCHLORIDE
     Dosage: CUTTING AT THE ^Z^ ON THE SERTRALINE TABLET
     Route: 048
  3. ZOLOFT [Suspect]
     Active Substance: SERTRALINE HYDROCHLORIDE
     Dosage: AROUND HALF TO 3/4 TABLET OF SERTRALINE
     Route: 048
  4. VALERIAN ROOT [Suspect]
     Active Substance: VALERIAN
     Indication: SLEEP DISORDER
     Dosage: UNK UNK, 1X/DAY (AT BEDTIME)
  5. ZOLOFT [Suspect]
     Active Substance: SERTRALINE HYDROCHLORIDE
     Indication: PERINATAL DEPRESSION
     Dosage: 12.5 MG, DAILY (SPLIT IT IN HALF)
     Route: 048
     Dates: start: 199904
  6. ZOLOFT [Suspect]
     Active Substance: SERTRALINE HYDROCHLORIDE
     Dosage: A SMALLER DOSE
     Route: 048
  7. ZOLOFT [Suspect]
     Active Substance: SERTRALINE HYDROCHLORIDE
     Dosage: UNK
     Route: 048
  8. IBUPROFEN. [Concomitant]
     Active Substance: IBUPROFEN
     Dosage: UNK (ONCE IN A WHILE)

REACTIONS (16)
  - Pain [Unknown]
  - Myalgia [Unknown]
  - Malaise [Recovered/Resolved]
  - Drug hypersensitivity [Unknown]
  - Withdrawal syndrome [Recovered/Resolved]
  - Agitation [Recovered/Resolved]
  - Feeling abnormal [Recovered/Resolved]
  - Intentional product use issue [Unknown]
  - Sleep disorder [Unknown]
  - Dizziness [Recovered/Resolved]
  - Serotonin syndrome [Recovered/Resolved]
  - Anxiety [Unknown]
  - Drug intolerance [Unknown]
  - Euphoric mood [Recovered/Resolved]
  - Back injury [Unknown]
  - Fibromyalgia [Unknown]

NARRATIVE: CASE EVENT DATE: 199904
